FAERS Safety Report 9716928 (Version 2)
Quarter: 2013Q4

REPORT INFORMATION
  Report Type: Spontaneous
  Country: US (occurrence: US)
  Receive Date: 20131127
  Receipt Date: 20131127
  Transmission Date: 20140711
  Serious: No
  Sender: FDA-Public Use
  Company Number: US-GILEAD-2009-0019874

PATIENT
  Sex: Male
  Weight: 71.67 kg

DRUGS (14)
  1. LETAIRIS [Suspect]
     Indication: PULMONARY ARTERIAL HYPERTENSION
     Route: 048
     Dates: start: 200812, end: 200901
  2. XANAX [Concomitant]
  3. AMLODIPINE BESYLATE [Concomitant]
  4. RAMIPRIL [Concomitant]
  5. NEXIUM [Concomitant]
  6. ASPIRIN CHEWABLE [Concomitant]
  7. TENORMIN [Concomitant]
  8. CELEXA [Concomitant]
  9. DULCOLAX [Concomitant]
  10. ZINC [Concomitant]
  11. VITAMIN C [Concomitant]
  12. VYTORIN [Concomitant]
  13. PLAVIX [Concomitant]
  14. HIDEWAY OXYGEN SYSTEM [Concomitant]

REACTIONS (4)
  - Night sweats [Unknown]
  - Gastrointestinal motility disorder [Unknown]
  - Dyspnoea [Unknown]
  - Local swelling [Unknown]
